FAERS Safety Report 15905170 (Version 1)
Quarter: 2019Q1

REPORT INFORMATION
  Report Type: Spontaneous
  Country: DE (occurrence: DE)
  Receive Date: 20190204
  Receipt Date: 20190204
  Transmission Date: 20190417
  Serious: Yes (Hospitalization)
  Sender: FDA-Public Use
  Company Number: DE-BAYER-200410056BVD

PATIENT
  Age: 63 Year
  Sex: Female

DRUGS (5)
  1. BRONCHORETARD [Concomitant]
     Active Substance: THEOPHYLLINE ANHYDROUS
  2. SULTANOL [Concomitant]
     Active Substance: ALBUTEROL SULFATE
     Route: 065
  3. SPASMO-MUCOSOLVAN [Concomitant]
     Active Substance: AMBROXOL\CLENBUTEROL
     Route: 065
  4. OMEP [OMEPRAZOLE] [Concomitant]
     Route: 065
  5. AVALOX [Suspect]
     Active Substance: MOXIFLOXACIN HYDROCHLORIDE
     Indication: CHRONIC OBSTRUCTIVE PULMONARY DISEASE
     Dosage: 400 MG, QD
     Route: 048
     Dates: start: 20031118, end: 20031130

REACTIONS (6)
  - Jaundice [Recovering/Resolving]
  - Faeces pale [Recovering/Resolving]
  - Abdominal pain upper [Recovering/Resolving]
  - Non-alcoholic steatohepatitis [Recovering/Resolving]
  - Chromaturia [Recovering/Resolving]
  - General physical health deterioration [Recovering/Resolving]

NARRATIVE: CASE EVENT DATE: 20031201
